FAERS Safety Report 18955909 (Version 9)
Quarter: 2021Q4

REPORT INFORMATION
  Report Type: Spontaneous
  Country: GB (occurrence: GB)
  Receive Date: 20210301
  Receipt Date: 20211202
  Transmission Date: 20220304
  Serious: Yes (Life-Threatening, Hospitalization, Disabling, Other)
  Sender: FDA-Public Use
  Company Number: None

PATIENT
  Age: 42 Year
  Sex: Female
  Weight: 98 kg

DRUGS (137)
  1. DOCETAXEL [Suspect]
     Active Substance: DOCETAXEL
     Indication: Breast cancer metastatic
     Dosage: 160 MG, QM
     Route: 042
     Dates: start: 20160718, end: 20160718
  2. DOCETAXEL [Suspect]
     Active Substance: DOCETAXEL
     Dosage: 160 MG, QM
     Route: 042
     Dates: start: 20160708, end: 20160708
  3. DOCETAXEL [Suspect]
     Active Substance: DOCETAXEL
     Dosage: 160 MG, QM
     Route: 042
     Dates: start: 20160808, end: 20160808
  4. DOCETAXEL [Suspect]
     Active Substance: DOCETAXEL
     Dosage: 164 MG, QM
     Route: 042
     Dates: start: 20160830, end: 20160830
  5. DOCETAXEL [Suspect]
     Active Substance: DOCETAXEL
     Dosage: 160 MG
     Route: 042
     Dates: start: 20160718, end: 20160830
  6. TRASTUZUMAB [Suspect]
     Active Substance: TRASTUZUMAB
     Indication: Breast cancer metastatic
     Dosage: 798MG LOADING THEN 609MG
     Route: 042
     Dates: start: 20160718, end: 20160830
  7. TRASTUZUMAB [Suspect]
     Active Substance: TRASTUZUMAB
     Dosage: 798 MG, QM
     Route: 042
     Dates: start: 20160718, end: 20160718
  8. TRASTUZUMAB [Suspect]
     Active Substance: TRASTUZUMAB
     Dosage: 588 MG, QM
     Route: 042
     Dates: start: 20160808, end: 20160808
  9. TRASTUZUMAB [Suspect]
     Active Substance: TRASTUZUMAB
     Dosage: 798 MG, QM
     Route: 042
     Dates: start: 20160718, end: 20160830
  10. TRASTUZUMAB [Suspect]
     Active Substance: TRASTUZUMAB
     Dosage: 609 MG, QM
     Route: 042
     Dates: start: 20160830, end: 20160830
  11. TRASTUZUMAB [Suspect]
     Active Substance: TRASTUZUMAB
     Dosage: 420 MG
     Route: 042
     Dates: start: 20160808, end: 20160830
  12. LETROZOLE [Suspect]
     Active Substance: LETROZOLE
     Indication: HER2 positive breast cancer
     Dosage: 2.5 MG, QD
     Route: 048
     Dates: start: 20170124
  13. DOXYCYCLINE [Suspect]
     Active Substance: DOXYCYCLINE
     Indication: Breast cancer metastatic
     Dosage: 160 MG, QM
     Route: 042
     Dates: start: 20160708, end: 20160708
  14. DOXYCYCLINE [Suspect]
     Active Substance: DOXYCYCLINE
     Dosage: 160 MG, QM
     Route: 042
     Dates: start: 20160718, end: 20160718
  15. DOXYCYCLINE [Suspect]
     Active Substance: DOXYCYCLINE
     Dosage: 160 MG, QM
     Route: 042
     Dates: start: 20160808, end: 20160808
  16. DOXYCYCLINE [Suspect]
     Active Substance: DOXYCYCLINE
     Dosage: 164 MG, QM
     Route: 042
     Dates: start: 20160830, end: 20160830
  17. DOXYCYCLINE [Suspect]
     Active Substance: DOXYCYCLINE
     Dosage: 100 MG
     Route: 048
     Dates: start: 20160803, end: 20160821
  18. PERTUZUMAB [Suspect]
     Active Substance: PERTUZUMAB
     Indication: HER2 positive breast cancer
     Dosage: 840 MG, LOADING DOSE
     Route: 042
     Dates: start: 20160718, end: 20160830
  19. PERTUZUMAB [Suspect]
     Active Substance: PERTUZUMAB
     Indication: Breast cancer metastatic
     Dosage: 40 MG, 840MG FIRST DOSE THEN 420MG DOSAGE FORM: INFUSION, SOLUTION840 MG, LOADING DOSE
     Route: 042
     Dates: start: 20160808, end: 20160830
  20. PERTUZUMAB [Suspect]
     Active Substance: PERTUZUMAB
     Dosage: 840 MG, LOADING DOSE
     Route: 042
     Dates: start: 20160718, end: 20160808
  21. PERTUZUMAB [Suspect]
     Active Substance: PERTUZUMAB
     Dosage: 420 MG, 420 MILLIGRAM, 840MG FIRST DOSE THEN 420MG
     Route: 042
     Dates: start: 20160808, end: 20160830
  22. PERTUZUMAB [Suspect]
     Active Substance: PERTUZUMAB
     Dosage: 840MG FIRST DOSE THEN 420MG
     Route: 042
     Dates: start: 20160718, end: 20160830
  23. ZOPICLONE [Concomitant]
     Active Substance: ZOPICLONE
     Indication: Product used for unknown indication
     Dosage: UNK
  24. MAGNESIUM SULFATE [Concomitant]
     Active Substance: MAGNESIUM SULFATE
     Indication: Product used for unknown indication
     Dosage: UNK
  25. ACETAMINOPHEN [Concomitant]
     Active Substance: ACETAMINOPHEN
     Indication: Pain
     Dosage: 1 G
     Route: 048
     Dates: start: 20160908
  26. NOREPINEPHRINE [Concomitant]
     Active Substance: NOREPINEPHRINE
     Indication: Product used for unknown indication
     Dosage: UNK
  27. CYCLIZINE [Concomitant]
     Active Substance: CYCLIZINE
     Indication: Nausea
     Dosage: 50 MG, PRN
     Route: 048
     Dates: start: 20160908
  28. CYCLIZINE [Concomitant]
     Active Substance: CYCLIZINE
     Dosage: 30 UNK
     Route: 048
     Dates: start: 20160908
  29. CLOPIDOGREL [Concomitant]
     Active Substance: CLOPIDOGREL BISULFATE
     Indication: Pneumonia
     Dosage: UNK
  30. CLOPIDOGREL [Concomitant]
     Active Substance: CLOPIDOGREL BISULFATE
     Indication: Neutropenic sepsis
  31. MEROPENEM [Concomitant]
     Active Substance: MEROPENEM
     Indication: Product used for unknown indication
     Dosage: UNK
  32. LOPERAMIDE [Concomitant]
     Active Substance: LOPERAMIDE
     Indication: Diarrhoea
     Dosage: 2 MILLIGRAM, UP TO 4 TIMES A DAY IF NEEDED FOR LOOSE
     Route: 048
     Dates: start: 20161230
  33. ALBUTEROL [Concomitant]
     Active Substance: ALBUTEROL
     Indication: Pneumonia
     Dosage: UNK
  34. FRUSEMIDE-BC [Concomitant]
     Indication: Acute kidney injury
     Dosage: UNK
  35. POTASSIUM CHLORIDE [Concomitant]
     Active Substance: POTASSIUM CHLORIDE
     Indication: Product used for unknown indication
     Dosage: UNK
  36. POTASSIUM CHLORIDE [Concomitant]
     Active Substance: POTASSIUM CHLORIDE
     Dosage: UNK
  37. CODEINE [Concomitant]
     Active Substance: CODEINE
     Indication: Product used for unknown indication
     Dosage: UNK
  38. MORPHINE [Concomitant]
     Active Substance: MORPHINE
     Indication: Product used for unknown indication
     Dosage: UNK
  39. TINZAPARIN [Concomitant]
     Active Substance: TINZAPARIN
     Indication: Product used for unknown indication
     Dosage: UNK
     Route: 065
  40. FLUCLOXACILLIN [Concomitant]
     Active Substance: FLUCLOXACILLIN
     Indication: Product used for unknown indication
     Dosage: UNK
     Route: 065
  41. TOLTERODINE [Concomitant]
     Active Substance: TOLTERODINE
     Indication: Acute kidney injury
     Dosage: UNK
  42. CITALOPRAM [Concomitant]
     Active Substance: CITALOPRAM HYDROBROMIDE
     Indication: Depression
     Dosage: 20 MG, QD
     Route: 048
     Dates: start: 20160921
  43. DANAPAROID [Concomitant]
     Active Substance: DANAPAROID
     Indication: Product used for unknown indication
     Dosage: UNK
  44. NITROGLYCERIN [Concomitant]
     Active Substance: NITROGLYCERIN
     Indication: Product used for unknown indication
     Dosage: UNK
  45. TRANEXAMIC ACID [Concomitant]
     Active Substance: TRANEXAMIC ACID
     Indication: Product used for unknown indication
     Dosage: UNK
  46. MAGNASPARTATE [Concomitant]
     Indication: Blood magnesium decreased
     Dosage: 10 MMOL
     Route: 065
     Dates: start: 20160908
  47. MAGNASPARTATE [Concomitant]
     Indication: Blood magnesium decreased
     Dosage: UNK
  48. MAGNASPARTATE [Concomitant]
     Dosage: UNK
  49. MAGNASPARTATE [Concomitant]
     Dosage: UNK
  50. MAGNASPARTATE [Concomitant]
     Dosage: 10 MMOL
     Dates: start: 20160908
  51. MAGNASPARTATE [Concomitant]
     Dosage: 10 MMOL
     Dates: start: 20160908
  52. MAGNASPARTATE [Concomitant]
     Dosage: 10 MMOL
     Dates: start: 20160908
  53. MAGNASPARTATE [Concomitant]
     Dates: start: 20160908
  54. MAGNASPARTATE [Concomitant]
     Dates: start: 20160908
  55. MAGNASPARTATE [Concomitant]
     Dates: start: 20160908
  56. MAGNASPARTATE [Concomitant]
     Dates: start: 20160908
  57. MAGNASPARTATE [Concomitant]
     Dosage: 10 MMOL
     Dates: start: 20160908
  58. MAGNASPARTATE [Concomitant]
     Dosage: 10 MMOL
     Dates: start: 20160908
  59. LEVOMEPROMAZINE [Concomitant]
     Active Substance: LEVOMEPROMAZINE
     Indication: Product used for unknown indication
     Dosage: UNK
  60. TAUROLIDINE [Concomitant]
     Active Substance: TAUROLIDINE
     Dosage: UNK
  61. OXYCODONE HYDROCHLORIDE [Concomitant]
     Active Substance: OXYCODONE HYDROCHLORIDE
     Indication: Pain
     Dosage: UNK
  62. OXYCODONE HYDROCHLORIDE [Concomitant]
     Active Substance: OXYCODONE HYDROCHLORIDE
     Dosage: UNK
  63. OXYCODONE HYDROCHLORIDE [Concomitant]
     Active Substance: OXYCODONE HYDROCHLORIDE
     Dosage: UNK
  64. DIHYDROCODEINE [Concomitant]
     Active Substance: DIHYDROCODEINE
     Indication: Pain
     Dosage: 30 MG
     Route: 048
     Dates: start: 20160908
  65. MAGNESIUM ASPARTATE [Concomitant]
     Active Substance: MAGNESIUM ASPARTATE
     Indication: Blood magnesium decreased
     Dosage: 10 MMOL
     Dates: start: 20160908
  66. GLUCOGEL [Concomitant]
     Indication: Neutropenic sepsis
     Dosage: UNK
  67. ONDANSETRON [Concomitant]
     Active Substance: ONDANSETRON
     Indication: Nausea
     Dosage: 4 MG
     Route: 048
     Dates: start: 20160908
  68. HYDROCORTISONE [Concomitant]
     Active Substance: HYDROCORTISONE
     Indication: Neutropenic sepsis
     Dosage: UNK
  69. ALFENTANIL [Concomitant]
     Active Substance: ALFENTANIL
     Indication: Product used for unknown indication
     Dosage: UNK
  70. ALTEPLASE [Concomitant]
     Active Substance: ALTEPLASE
     Indication: Colitis ischaemic
     Dosage: UNK
     Route: 065
  71. ARGATROBAN [Concomitant]
     Active Substance: ARGATROBAN
     Indication: Colitis ischaemic
     Dosage: UNK
  72. BISOPROLOL [Concomitant]
     Active Substance: BISOPROLOL
     Indication: Acute kidney injury
     Dosage: UNK
  73. BONJELA ADULT [Concomitant]
     Indication: Neutropenic sepsis
     Dosage: UNK
  74. BUTYLSCOPOLAMINE BROMIDE [Concomitant]
     Active Substance: BUTYLSCOPOLAMINE BROMIDE
     Indication: Colitis ischaemic
     Dosage: UNK
  75. BUTYLSCOPOLAMINE BROMIDE [Concomitant]
     Active Substance: BUTYLSCOPOLAMINE BROMIDE
     Indication: Colitis ischaemic
     Dosage: UNK
  76. BUTYLSCOPOLAMINE BROMIDE [Concomitant]
     Active Substance: BUTYLSCOPOLAMINE BROMIDE
     Dosage: UNK
  77. CALCIUM GLUCONATE [Concomitant]
     Active Substance: CALCIUM GLUCONATE
     Indication: Colitis ischaemic
     Dosage: UNK
  78. CHLORHEXIDINE [Concomitant]
     Active Substance: CHLORHEXIDINE
     Indication: Colitis ischaemic
     Dosage: UNK
  79. CHLORPHENIRAMINE MALEATE [Concomitant]
     Active Substance: CHLORPHENIRAMINE MALEATE
     Indication: Neutropenic sepsis
     Dosage: UNK
  80. CIPROFLOXACIN [Concomitant]
     Active Substance: CIPROFLOXACIN
     Indication: Neutropenic sepsis
     Dosage: UNK
  81. DALTEPARIN [Concomitant]
     Active Substance: DALTEPARIN
     Indication: Acute kidney injury
     Dosage: UNK
  82. DEXTROSE [Concomitant]
     Active Substance: DEXTROSE
     Indication: Product used for unknown indication
     Dosage: UNK
  83. DIAZEPAM [Concomitant]
     Active Substance: DIAZEPAM
     Indication: Colitis ischaemic
     Dosage: UNK
     Route: 048
  84. EPOPROSTENOL [Concomitant]
     Active Substance: EPOPROSTENOL
     Indication: Acute kidney injury
     Dosage: UNK
  85. ERDOSTEINE [Concomitant]
     Active Substance: ERDOSTEINE
     Indication: Pneumonia
     Dosage: UNK
  86. ERDOSTEINE [Concomitant]
     Active Substance: ERDOSTEINE
     Indication: Pneumonia
     Dosage: 10 MMOL
     Dates: start: 20160908
  87. ERDOSTEINE [Concomitant]
     Active Substance: ERDOSTEINE
     Indication: Pneumonia
     Dosage: UNK
  88. ERDOSTEINE [Concomitant]
     Active Substance: ERDOSTEINE
     Indication: Blood magnesium decreased
  89. ERYTHROMYCIN [Concomitant]
     Active Substance: ERYTHROMYCIN
     Indication: Neutropenic sepsis
     Dosage: UNK
  90. FILGRASTIM [Concomitant]
     Active Substance: FILGRASTIM
     Indication: Neutropenic sepsis
     Dosage: UNK
  91. FLUCONAZOLE [Concomitant]
     Active Substance: FLUCONAZOLE
     Indication: Neutropenic sepsis
     Dosage: UNK
  92. FONDAPARINUX [Concomitant]
     Active Substance: FONDAPARINUX
     Indication: Colitis ischaemic
     Dosage: UNK
  93. FRAGMIN [Concomitant]
     Active Substance: DALTEPARIN SODIUM
     Indication: Vomiting
     Dosage: UNK
  94. FRAGMIN [Concomitant]
     Active Substance: DALTEPARIN SODIUM
     Indication: Abdominal pain
     Dosage: UNK
  95. FRAGMIN [Concomitant]
     Active Substance: DALTEPARIN SODIUM
     Dosage: UNK
  96. GENTAMICIN [Concomitant]
     Active Substance: GENTAMICIN
     Indication: Product used for unknown indication
     Dosage: UNK
  97. DEXTROSE [Concomitant]
     Active Substance: DEXTROSE
     Indication: Neutropenic sepsis
     Dosage: UNK
  98. DEXTROSE [Concomitant]
     Active Substance: DEXTROSE
     Dosage: UNK
     Route: 042
  99. SODIUM LACTATE [Concomitant]
     Active Substance: SODIUM LACTATE
     Indication: Product used for unknown indication
     Dosage: UNK
  100. CALCIUM CHLORIDE [Concomitant]
     Active Substance: CALCIUM CHLORIDE
     Indication: Product used for unknown indication
     Dosage: UNK
  101. HEPARIN [Concomitant]
     Active Substance: HEPARIN SODIUM
     Indication: Acute kidney injury
     Dosage: UNK
  102. LANSOPRAZOLE [Concomitant]
     Active Substance: LANSOPRAZOLE
     Indication: Colitis ischaemic
     Dosage: 30 MG, QD
     Route: 048
     Dates: start: 20160908
  103. METARAMINOL [Concomitant]
     Active Substance: METARAMINOL
     Indication: Colitis ischaemic
     Dosage: UNK
  104. METOCLOPRAMIDE [Concomitant]
     Active Substance: METOCLOPRAMIDE
     Indication: Colitis ischaemic
     Dosage: UNK
  105. METRONIDAZOLE [Concomitant]
     Active Substance: METRONIDAZOLE
     Indication: Colitis ischaemic
     Dosage: UNK
  106. MIDAZOLAM [Concomitant]
     Active Substance: MIDAZOLAM
     Indication: Colitis ischaemic
     Dosage: UNK
  107. MORPHINE SULFATE [Concomitant]
     Active Substance: MORPHINE SULFATE
     Indication: Product used for unknown indication
     Dosage: UNK
  108. CHLORHEXIDINE HYDROCHLORIDE\NEOMYCIN SULFATE [Concomitant]
     Active Substance: CHLORHEXIDINE HYDROCHLORIDE\NEOMYCIN SULFATE
     Indication: Colitis ischaemic
     Dosage: UNK
  109. CHLORHEXIDINE HYDROCHLORIDE\NEOMYCIN SULFATE [Concomitant]
     Active Substance: CHLORHEXIDINE HYDROCHLORIDE\NEOMYCIN SULFATE
     Indication: Colitis ischaemic
     Dosage: UNK
  110. CHLORHEXIDINE HYDROCHLORIDE\NEOMYCIN SULFATE [Concomitant]
     Active Substance: CHLORHEXIDINE HYDROCHLORIDE\NEOMYCIN SULFATE
     Dosage: UNK
  111. CHLORHEXIDINE HYDROCHLORIDE\NEOMYCIN SULFATE [Concomitant]
     Active Substance: CHLORHEXIDINE HYDROCHLORIDE\NEOMYCIN SULFATE
     Dosage: UNK
  112. NORADRENALINE PCH [Concomitant]
     Dosage: UNK
  113. OMEPRAZOLE [Concomitant]
     Active Substance: OMEPRAZOLE
     Indication: Colitis ischaemic
     Dosage: UNK
  114. ORAMORPH SR SUSTAINED RELEASE [Concomitant]
     Active Substance: MORPHINE SULFATE
     Indication: Product used for unknown indication
     Dosage: UNK
  115. PROPOFOL [Concomitant]
     Active Substance: PROPOFOL
     Indication: Colitis ischaemic
     Dosage: UNK
  116. RAMIPRIL [Concomitant]
     Active Substance: RAMIPRIL
     Indication: Acute kidney injury
     Dosage: UNK
  117. POTASSIUM BICARBONATE [Concomitant]
     Active Substance: POTASSIUM BICARBONATE
     Indication: Acute kidney injury
     Dosage: UNK
  118. SANDOCAL 1000 [Concomitant]
     Indication: Acute kidney injury
     Dosage: UNK
  119. SODIUM CITRATE [Concomitant]
     Active Substance: SODIUM CITRATE
     Indication: Product used for unknown indication
     Dosage: UNK
     Route: 065
  120. SODIUM CITRATE [Concomitant]
     Active Substance: SODIUM CITRATE
     Dosage: UNK
     Route: 065
  121. TAUROLIDINE [Concomitant]
     Active Substance: TAUROLIDINE
     Indication: Product used for unknown indication
     Dosage: UNK
  122. PIPERACILLIN SODIUM\TAZOBACTAM SODIUM [Concomitant]
     Active Substance: PIPERACILLIN SODIUM\TAZOBACTAM SODIUM
     Indication: Neutropenic sepsis
     Dosage: UNK
  123. PIPERACILLIN SODIUM\TAZOBACTAM SODIUM [Concomitant]
     Active Substance: PIPERACILLIN SODIUM\TAZOBACTAM SODIUM
     Dosage: UNK
  124. PIPERACILLIN SODIUM\TAZOBACTAM SODIUM [Concomitant]
     Active Substance: PIPERACILLIN SODIUM\TAZOBACTAM SODIUM
     Dosage: UNK
  125. TEICOPLANIN [Concomitant]
     Active Substance: TEICOPLANIN
     Indication: Colitis ischaemic
     Dosage: UNK
  126. VASOPRESSIN [Concomitant]
     Active Substance: VASOPRESSIN
     Indication: Neutropenic sepsis
     Dosage: UNK
  127. POTASSIUM [Concomitant]
     Active Substance: POTASSIUM
     Indication: Acute kidney injury
     Dosage: UNK
  128. HARTMANS [Concomitant]
     Indication: Neutropenic sepsis
     Dosage: UNK
  129. DURAMORPH [Concomitant]
     Active Substance: MORPHINE SULFATE
     Dosage: UNK
  130. DOXYCYCLINE [Concomitant]
     Active Substance: DOXYCYCLINE
     Indication: Rash
     Dosage: 100 MG
     Route: 048
     Dates: start: 20160803, end: 20160821
  131. DOXYCYCLINE [Concomitant]
     Active Substance: DOXYCYCLINE
     Dosage: UNK
     Route: 042
     Dates: start: 20160830
  132. ASPIRIN [Concomitant]
     Active Substance: ASPIRIN
     Indication: Colitis ischaemic
  133. FUROSEMIDE [Concomitant]
     Active Substance: FUROSEMIDE
     Indication: Acute kidney injury
  134. NOREPINEPHRINE [Concomitant]
     Active Substance: NOREPINEPHRINE
     Indication: Product used for unknown indication
  135. BONJELA [CETALKONIUM CHLORIDE;CHOLINE SALICYLATE] [Concomitant]
     Indication: Neutropenic sepsis
     Dosage: UNK
  136. CALCIUM CHLORIDE\POTASSIUM CHLORIDE\SODIUM CHLORIDE\SODIUM LACTATE [Concomitant]
     Active Substance: CALCIUM CHLORIDE\POTASSIUM CHLORIDE\SODIUM CHLORIDE\SODIUM LACTATE
     Indication: Neutropenic sepsis
     Dosage: UNK
  137. SANDOCAL [CALCIUM CARBONATE;CALCIUM LACTATE GLUCONATE] [Concomitant]
     Indication: Acute kidney injury
     Dosage: UNK
     Route: 065

REACTIONS (14)
  - Peritonitis [Recovered/Resolved]
  - Perforation [Recovering/Resolving]
  - Acute kidney injury [Unknown]
  - Colitis ischaemic [Not Recovered/Not Resolved]
  - Colitis [Recovering/Resolving]
  - Diarrhoea [Recovered/Resolved]
  - Neutropenic sepsis [Not Recovered/Not Resolved]
  - Pneumonia [Recovered/Resolved]
  - Abdominal pain [Recovered/Resolved]
  - Rash [Unknown]
  - Vomiting [Recovered/Resolved]
  - Abdominal pain [Recovered/Resolved with Sequelae]
  - Vomiting [Recovered/Resolved with Sequelae]
  - Colitis [Recovered/Resolved]

NARRATIVE: CASE EVENT DATE: 20160803
